FAERS Safety Report 8519641-5 (Version None)
Quarter: 2012Q3

REPORT INFORMATION
  Report Type: 
  Country: None (occurrence: None)
  Receive Date: 20120718
  Receipt Date: 20120711
  Transmission Date: 20120928
  Serious: No
  Sender: FDA-Public Use
  Company Number: US-009507513-1207USA002962

PATIENT

DRUGS (1)
  1. PEG-INTRON [Suspect]
     Dosage: 0.35 ML, QW
     Route: 058
     Dates: start: 20120101

REACTIONS (2)
  - DIARRHOEA [None]
  - RASH [None]
